FAERS Safety Report 6837079-3 (Version None)
Quarter: 2010Q3

REPORT INFORMATION
  Report Type: 
  Country: None (occurrence: None)
  Receive Date: 20100713
  Receipt Date: 20070503
  Transmission Date: 20110219
  Serious: No
  Sender: FDA-Public Use
  Company Number: US-PFIZER INC-2007037678

PATIENT
  Sex: Male
  Weight: 72.272 kg

DRUGS (6)
  1. CHANTIX [Suspect]
     Indication: SMOKING CESSATION THERAPY
     Dates: start: 20061226
  2. SALBUTAMOL [Concomitant]
  3. ATROVENT [Concomitant]
  4. ADVAIR DISKUS 100/50 [Concomitant]
  5. CRESTOR [Concomitant]
  6. NEXIUM [Concomitant]

REACTIONS (1)
  - ABNORMAL DREAMS [None]
